FAERS Safety Report 16180512 (Version 2)
Quarter: 2019Q2

REPORT INFORMATION
  Report Type: Spontaneous
  Country: US (occurrence: US)
  Receive Date: 20190410
  Receipt Date: 20190628
  Transmission Date: 20190711
  Serious: No
  Sender: FDA-Public Use
  Company Number: US-PFIZER INC-2019151171

PATIENT
  Age: 55 Year
  Sex: Female
  Weight: 73 kg

DRUGS (7)
  1. GABAPENTIN. [Suspect]
     Active Substance: GABAPENTIN
     Indication: FIBROMYALGIA
     Dosage: 300 MG, 1X/DAY
  2. METAXALONE. [Concomitant]
     Active Substance: METAXALONE
     Indication: MYALGIA
     Dosage: 800 MG, AS NEEDED (HALF TO 1 TABLET AS NEEDED 3 TIMES A DAY)
     Dates: start: 201512, end: 2016
  3. METAXALONE. [Concomitant]
     Active Substance: METAXALONE
     Indication: MUSCLE SPASMS
  4. MELOXICAM. [Concomitant]
     Active Substance: MELOXICAM
     Indication: BACK PAIN
     Dosage: 7.5 MG, 2X/DAY
     Dates: start: 2014, end: 2015
  5. GABAPENTIN. [Suspect]
     Active Substance: GABAPENTIN
     Dosage: 300 MG, 3X/DAY
     Dates: start: 201508, end: 201606
  6. GABAPENTIN. [Suspect]
     Active Substance: GABAPENTIN
     Dosage: 900MG, UNK
  7. LYRICA [Concomitant]
     Active Substance: PREGABALIN
     Dosage: UNK
     Dates: start: 201606

REACTIONS (1)
  - Drug ineffective [Unknown]
